FAERS Safety Report 8232379-7 (Version None)
Quarter: 2012Q1

REPORT INFORMATION
  Report Type: 
  Country: None (occurrence: None)
  Receive Date: 20120323
  Receipt Date: 20120312
  Transmission Date: 20120608
  Serious: Yes (Hospitalization)
  Sender: FDA-Public Use
  Company Number: FR-GLAXOSMITHKLINE-B0787470A

PATIENT
  Sex: Female

DRUGS (7)
  1. VESANOID [Suspect]
     Indication: CHEMOTHERAPY
     Dosage: 900MG EVERY 3 MONTHS
     Route: 048
     Dates: start: 20111027, end: 20120125
  2. BARACLUDE [Suspect]
     Indication: HEPATITIS B
     Dosage: 1TAB PER DAY
     Route: 048
     Dates: start: 20110915, end: 20120125
  3. BACTRIM [Suspect]
     Indication: PROPHYLAXIS
     Route: 048
     Dates: start: 20111221, end: 20120125
  4. VALACYCLOVIR HYDROCHLORIDE [Suspect]
     Indication: PROPHYLAXIS
     Route: 048
     Dates: start: 20111221, end: 20120125
  5. PURINETHOL [Suspect]
     Indication: CHEMOTHERAPY
     Dosage: 1TAB TWICE PER DAY
     Route: 048
     Dates: start: 20111221, end: 20120125
  6. METHOTREXATE [Suspect]
     Indication: ACUTE PROMYELOCYTIC LEUKAEMIA
     Dosage: 20MG WEEKLY
     Route: 048
     Dates: start: 20111221, end: 20120125
  7. VIREAD [Concomitant]
     Indication: HEPATITIS B
     Dosage: 245MG PER DAY
     Dates: start: 20110915

REACTIONS (2)
  - HEPATIC FAILURE [None]
  - HEPATITIS [None]
